FAERS Safety Report 8507839 (Version 3)
Quarter: 2012Q4

REPORT INFORMATION
  Report Type: 
  Country: US (occurrence: US)
  Receive Date: 20120412
  Receipt Date: 20120925
  Transmission Date: 20130627
  Serious: Yes (Other)
  Sender: FDA-Public Use
  Company Number: US-ASTRAZENECA-2011SE65407

PATIENT
  Age: 84 Year
  Sex: Female
  Weight: 63.5 kg

DRUGS (2)
  1. NEXIUM [Suspect]
     Indication: GASTROOESOPHAGEAL REFLUX DISEASE
     Route: 048
     Dates: start: 2006
  2. LISINOPRIL [Concomitant]
     Indication: BLOOD PRESSURE ABNORMAL
     Dosage: 20/25

REACTIONS (11)
  - Benign neoplasm of thyroid gland [Unknown]
  - Osteoporosis [Unknown]
  - Pruritus generalised [Unknown]
  - Eczema [Unknown]
  - Pallor [Unknown]
  - Skin haemorrhage [Unknown]
  - Palpitations [Unknown]
  - Dyspepsia [Unknown]
  - Rash [Unknown]
  - Malaise [Unknown]
  - Drug dose omission [Unknown]
